FAERS Safety Report 10587907 (Version 1)
Quarter: 2014Q4

REPORT INFORMATION
  Report Type: Spontaneous
  Country: SE (occurrence: SE)
  Receive Date: 20141117
  Receipt Date: 20141117
  Transmission Date: 20150529
  Serious: Yes (Hospitalization)
  Sender: FDA-Public Use
  Company Number: SE-SA-2014SA156095

PATIENT
  Age: 46 Year
  Sex: Male

DRUGS (3)
  1. STILNOCT [Suspect]
     Active Substance: ZOLPIDEM TARTRATE
     Dosage: CA 3 ST, STYRKA: OKLART
     Route: 065
     Dates: start: 20130921, end: 20130921
  2. PANOCOD [Concomitant]
     Active Substance: ACETAMINOPHEN\CODEINE PHOSPHATE
     Route: 065
  3. OXASCAND [Suspect]
     Active Substance: OXAZEPAM
     Dosage: CA 3 ST, STYRKA: OKLART
     Route: 065
     Dates: start: 20130921, end: 20130921

REACTIONS (1)
  - Poisoning [Recovered/Resolved]

NARRATIVE: CASE EVENT DATE: 20130921
